FAERS Safety Report 9789873 (Version 1)
Quarter: 2013Q4

REPORT INFORMATION
  Report Type: Spontaneous
  Country: US (occurrence: None)
  Receive Date: 20131227
  Receipt Date: 20131227
  Transmission Date: 20140711
  Serious: Yes (Other)
  Sender: FDA-Public Use
  Company Number: 2013SA133635

PATIENT
  Age: 22 Year
  Sex: Female

DRUGS (1)
  1. ASPERCREME / UNKNOWN / UNKNOWN [Suspect]
     Dates: start: 20131218

REACTIONS (3)
  - Blister [None]
  - Erythema [None]
  - Burning sensation [None]
